FAERS Safety Report 19372809 (Version 1)
Quarter: 2021Q2

REPORT INFORMATION
  Report Type: Spontaneous
  Country: US (occurrence: US)
  Receive Date: 20210604
  Receipt Date: 20210604
  Transmission Date: 20210717
  Serious: Yes (Other)
  Sender: FDA-Public Use
  Company Number: US-SA-2021SA183924

PATIENT
  Age: 38 Year
  Sex: Female

DRUGS (1)
  1. ZANTAC [Suspect]
     Active Substance: RANITIDINE HYDROCHLORIDE
     Dosage: 25 MG, QW
     Dates: start: 200005, end: 200706

REACTIONS (2)
  - Breast cancer stage IV [Recovering/Resolving]
  - Hepatic cancer stage IV [Recovering/Resolving]

NARRATIVE: CASE EVENT DATE: 20070901
